FAERS Safety Report 15285659 (Version 1)
Quarter: 2018Q3

REPORT INFORMATION
  Report Type: Spontaneous
  Country: US (occurrence: US)
  Receive Date: 20180802
  Receipt Date: 20180802
  Transmission Date: 20181010
  Serious: Yes (Life-Threatening, Hospitalization)
  Sender: FDA-Public Use
  Company Number: None

PATIENT
  Age: 84 Year
  Sex: Female
  Weight: 123 kg

DRUGS (9)
  1. FUROSEMIDE 40 MG PO BID [Concomitant]
     Dates: end: 20180731
  2. HYDRALAZINE 50 MG PO TID [Concomitant]
     Dates: end: 20180731
  3. APIXABAN [Suspect]
     Active Substance: APIXABAN
     Indication: ATRIAL FIBRILLATION
     Route: 048
     Dates: start: 20180613, end: 20180731
  4. TRAMADOL 50 MG PO BID [Concomitant]
     Dates: end: 20180731
  5. APIXABAN [Suspect]
     Active Substance: APIXABAN
     Indication: CEREBROVASCULAR ACCIDENT
     Route: 048
     Dates: start: 20180613, end: 20180731
  6. APIXABAN [Suspect]
     Active Substance: APIXABAN
     Indication: PROPHYLAXIS
     Route: 048
     Dates: start: 20180613, end: 20180731
  7. CARVEDILOL 3.125 MG PO BID [Concomitant]
     Dates: end: 20180731
  8. ONDANSETRON 4 MG PO Q8H PRN N/V [Concomitant]
     Dates: end: 20180731
  9. FERROUS SULFATE 325 MG PO DAILY [Concomitant]
     Dates: end: 20180731

REACTIONS (1)
  - Gastrointestinal haemorrhage [None]

NARRATIVE: CASE EVENT DATE: 20180801
